FAERS Safety Report 8943042 (Version 1)
Quarter: 2012Q4

REPORT INFORMATION
  Report Type: 
  Country: US (occurrence: US)
  Receive Date: 20121204
  Receipt Date: 20121204
  Transmission Date: 20130627
  Serious: No
  Sender: FDA-Public Use
  Company Number: US-BIOGENIDEC-2012BI056351

PATIENT
  Sex: Male

DRUGS (3)
  1. TYSABRI [Suspect]
     Indication: MULTIPLE SCLEROSIS
     Route: 042
     Dates: start: 20050121
  2. TYSABRI [Suspect]
     Indication: MULTIPLE SCLEROSIS
     Route: 042
     Dates: start: 20081008
  3. AVONEX [Concomitant]
     Indication: MULTIPLE SCLEROSIS
     Route: 030
     Dates: start: 19981201

REACTIONS (8)
  - Disorientation [Recovered/Resolved]
  - Mental impairment [Recovered/Resolved]
  - Depression [Unknown]
  - Feeling of despair [Recovered/Resolved]
  - Asthenia [Unknown]
  - Drug ineffective [Unknown]
  - Multiple sclerosis [Unknown]
  - Dizziness [Recovered/Resolved]
